FAERS Safety Report 6826712-8 (Version None)
Quarter: 2010Q3

REPORT INFORMATION
  Report Type: 
  Country: None (occurrence: None)
  Receive Date: 20100709
  Receipt Date: 20100701
  Transmission Date: 20110219
  Serious: Yes (Other)
  Sender: FDA-Public Use
  Company Number: GXKR2010AU07326

PATIENT
  Age: 70 Year
  Sex: Male

DRUGS (8)
  1. FLUOROURACIL [Suspect]
     Indication: COLON CANCER
  2. FLUOROURACIL [Suspect]
     Indication: METASTASES TO LIVER
     Route: 040
  3. OXALIPLATIN [Concomitant]
     Indication: COLON CANCER
     Route: 065
  4. OXALIPLATIN [Concomitant]
     Indication: METASTASES TO LIVER
  5. FOLINIC ACID [Concomitant]
     Indication: COLON CANCER
     Route: 065
  6. FOLINIC ACID [Concomitant]
     Indication: METASTASES TO LIVER
  7. BEVACIZUMAB [Concomitant]
     Dosage: 5 MG/KG TWICE WEEKLY
     Route: 065
  8. IRINOTECAN HCL [Concomitant]
     Indication: METASTASES TO LIVER
     Dosage: UNK
     Route: 065

REACTIONS (7)
  - ARTERIOSPASM CORONARY [None]
  - ATRIAL FIBRILLATION [None]
  - ATRIOVENTRICULAR BLOCK SECOND DEGREE [None]
  - BRADYCARDIA [None]
  - CHEST PAIN [None]
  - DIZZINESS [None]
  - HYPOTENSION [None]
